FAERS Safety Report 7001119-1 (Version None)
Quarter: 2010Q3

REPORT INFORMATION
  Report Type: 
  Country: None (occurrence: None)
  Receive Date: 20100920
  Receipt Date: 20100908
  Transmission Date: 20110219
  Serious: Yes (Hospitalization)
  Sender: FDA-Public Use
  Company Number: PHHY2010FR53224

PATIENT
  Sex: Female
  Weight: 70 kg

DRUGS (2)
  1. TAREG [Suspect]
     Indication: HYPERTENSION
     Dosage: 160 MG, (1 DF DAILY)
     Route: 048
  2. TAREG [Suspect]
     Dosage: 80 MG, UNK
     Dates: start: 20100801, end: 20100806

REACTIONS (10)
  - ANAEMIA [None]
  - ANTINUCLEAR ANTIBODY POSITIVE [None]
  - ARTHRALGIA [None]
  - DNA ANTIBODY POSITIVE [None]
  - FATIGUE [None]
  - HAEMOLYTIC ANAEMIA [None]
  - MUSCLE SPASMS [None]
  - OEDEMA PERIPHERAL [None]
  - PSORIASIS [None]
  - SKIN EXFOLIATION [None]
